FAERS Safety Report 24654039 (Version 2)
Quarter: 2024Q4

REPORT INFORMATION
  Report Type: Spontaneous
  Country: JP (occurrence: JP)
  Receive Date: 20241122
  Receipt Date: 20241210
  Transmission Date: 20250115
  Serious: Yes (Other)
  Sender: ELI LILLY AND COMPANY
  Company Number: JP-ELI_LILLY_AND_COMPANY-JP202411011534

PATIENT
  Age: 55 Year
  Sex: Female

DRUGS (2)
  1. VERZENIO [Suspect]
     Active Substance: ABEMACICLIB
     Indication: Breast cancer recurrent
     Dosage: 300 MG, DAILY
     Route: 048
  2. LETROZOLE [Concomitant]
     Active Substance: LETROZOLE
     Indication: Breast cancer recurrent
     Dosage: 2.5 MG, DAILY

REACTIONS (7)
  - Acute kidney injury [Recovered/Resolved]
  - Glomerular filtration rate decreased [Unknown]
  - Dehydration [Unknown]
  - Abdominal pain [Unknown]
  - Anaemia [Recovered/Resolved]
  - Diarrhoea [Unknown]
  - Blood creatinine increased [Unknown]
